FAERS Safety Report 8492422-7 (Version None)
Quarter: 2012Q3

REPORT INFORMATION
  Report Type: 
  Country: None (occurrence: None)
  Receive Date: 20120706
  Receipt Date: 20120704
  Transmission Date: 20120928
  Serious: Yes (Life-Threatening)
  Sender: FDA-Public Use
  Company Number: CO-PFIZER INC-2012075060

PATIENT
  Age: 25 Year
  Sex: Male

DRUGS (2)
  1. PRISTIQ [Suspect]
     Indication: OBSESSIVE-COMPULSIVE DISORDER
  2. PRISTIQ [Suspect]
     Indication: DEPRESSION
     Dosage: 50 MG, UNK
     Dates: start: 20100101

REACTIONS (1)
  - HYPERTENSION [None]
